FAERS Safety Report 6532871-7 (Version None)
Quarter: 2010Q1

REPORT INFORMATION
  Report Type: 
  Country: None (occurrence: None)
  Receive Date: 20100111
  Receipt Date: 20100104
  Transmission Date: 20100710
  Serious: Yes (Death)
  Sender: FDA-Public Use
  Company Number: FR-ELI_LILLY_AND_COMPANY-FR201001000629

PATIENT
  Sex: Female

DRUGS (2)
  1. GEMZAR [Suspect]
     Indication: OVARIAN CANCER RECURRENT
     Dosage: 1000 MG/M2, OTHER (ON DAY ONE. EIGHT AND 15 IN A 28 DAY CYCLE)
     Route: 042
  2. HYCAMTIN [Concomitant]
     Indication: OVARIAN CANCER RECURRENT
     Dosage: 2.5 MG/M2, OTHER #9ON DAY ONE, EIGHT AND 15 IN A 28 DAY CYCLE)
     Route: 042

REACTIONS (1)
  - INTERSTITIAL LUNG DISEASE [None]
